FAERS Safety Report 25124555 (Version 1)
Quarter: 2025Q1

REPORT INFORMATION
  Report Type: Spontaneous
  Country: US (occurrence: None)
  Receive Date: 20250324
  Receipt Date: 20250324
  Transmission Date: 20250408
  Serious: Yes (Other)
  Sender: FDA-CTU
  Company Number: None

PATIENT
  Age: 76 Year
  Sex: Female
  Weight: 49.9 kg

DRUGS (1)
  1. ESTRADIOL [Suspect]
     Active Substance: ESTRADIOL

REACTIONS (3)
  - Vulvovaginal injury [None]
  - Pain [None]
  - Product communication issue [None]

NARRATIVE: CASE EVENT DATE: 20230915
